FAERS Safety Report 13592835 (Version 1)
Quarter: 2017Q2

REPORT INFORMATION
  Report Type: Spontaneous
  Country: DE (occurrence: DE)
  Receive Date: 20170530
  Receipt Date: 20170530
  Transmission Date: 20170830
  Serious: Yes (Other)
  Sender: FDA-Public Use
  Company Number: DE-VERTEX PHARMACEUTICALS-2017-002818

PATIENT
  Age: 19 Year
  Sex: Female

DRUGS (1)
  1. ORKAMBI [Suspect]
     Active Substance: IVACAFTOR\LUMACAFTOR
     Indication: CYSTIC FIBROSIS
     Dosage: UNK
     Route: 048
     Dates: start: 2015

REACTIONS (3)
  - Pulmonary function test decreased [Not Recovered/Not Resolved]
  - Blood creatine phosphokinase increased [Not Recovered/Not Resolved]
  - Myositis [Not Recovered/Not Resolved]

NARRATIVE: CASE EVENT DATE: 2016
